FAERS Safety Report 5113734-0 (Version None)
Quarter: 2006Q3

REPORT INFORMATION
  Report Type: 
  Country: None (occurrence: None)
  Receive Date: 20060921
  Receipt Date: 20060921
  Transmission Date: 20061208
  Serious: Yes (Hospitalization)
  Sender: FDA-Public Use
  Company Number: None

PATIENT
  Age: 70 Year
  Sex: Male

DRUGS (9)
  1. ASPIRIN [Suspect]
     Indication: PAIN IN EXTREMITY
     Dosage: 2-4 TABS/DAY PO
     Route: 048
  2. ASPIRIN [Concomitant]
  3. VIT B12 [Concomitant]
  4. COLACE [Concomitant]
  5. RANITIDINE [Concomitant]
  6. MORPHINE [Concomitant]
  7. TEMAZEPAM [Concomitant]
  8. BENADRYL [Concomitant]
  9. TYLENOL [Concomitant]

REACTIONS (6)
  - BLOOD PRESSURE SYSTOLIC INCREASED [None]
  - CONSTIPATION [None]
  - HAEMATEMESIS [None]
  - HAEMOGLOBIN DECREASED [None]
  - NAUSEA [None]
  - REFUSAL OF TREATMENT BY PATIENT [None]
